FAERS Safety Report 17996733 (Version 2)
Quarter: 2020Q3

REPORT INFORMATION
  Report Type: Spontaneous
  Country: GB (occurrence: GB)
  Receive Date: 20200708
  Receipt Date: 20200717
  Transmission Date: 20201103
  Serious: Yes (Other)
  Sender: FDA-Public Use
  Company Number: GB-MYLANLABS-2020M1062172

PATIENT
  Sex: Female

DRUGS (2)
  1. TIVICAY [Concomitant]
     Active Substance: DOLUTEGRAVIR SODIUM
     Dosage: UNK, QD
  2. EMTRICITABINE,TENOFOVIR MYLAN [Suspect]
     Active Substance: EMTRICITABINE\TENOFOVIR
     Indication: PRODUCT USED FOR UNKNOWN INDICATION
     Dosage: UNK, QD

REACTIONS (4)
  - Headache [Unknown]
  - Suspected COVID-19 [Unknown]
  - Pyrexia [Unknown]
  - Vomiting [Unknown]
